APPROVED DRUG PRODUCT: TESTOSTERONE
Active Ingredient: TESTOSTERONE
Strength: 12.5MG/1.25GM ACTUATION
Dosage Form/Route: GEL, METERED;TRANSDERMAL
Application: A076737 | Product #003 | TE Code: AB1
Applicant: ACTAVIS LABORATORIES UT INC
Approved: Mar 9, 2015 | RLD: No | RS: Yes | Type: RX